FAERS Safety Report 14784979 (Version 1)
Quarter: 2018Q2

REPORT INFORMATION
  Report Type: Spontaneous
  Country: US (occurrence: US)
  Receive Date: 20180413
  Receipt Date: 20180413
  Transmission Date: 20180711
  Serious: Yes (Other)
  Sender: FDA-Public Use
  Company Number: None

PATIENT
  Age: 68 Year
  Sex: Male

DRUGS (5)
  1. NORTHERA [Suspect]
     Active Substance: DROXIDOPA
     Indication: PARKINSON^S DISEASE
     Dosage: ?          OTHER DOSE:100MG X 2;?
     Route: 048
     Dates: start: 20170519
  2. CARBIDOPA. [Concomitant]
     Active Substance: CARBIDOPA
  3. MIDODRINE [Concomitant]
     Active Substance: MIDODRINE
  4. CANDIDA [Concomitant]
     Active Substance: CANDIDA ALBICANS
  5. TAMSULOSIN [Concomitant]
     Active Substance: TAMSULOSIN

REACTIONS (3)
  - Vomiting [None]
  - Drug dose omission [None]
  - Blood pressure decreased [None]
